FAERS Safety Report 6800912-5 (Version None)
Quarter: 2010Q2

REPORT INFORMATION
  Report Type: 
  Country: None (occurrence: None)
  Receive Date: 20100629
  Receipt Date: 20100616
  Transmission Date: 20101027
  Serious: Yes (Hospitalization)
  Sender: FDA-Public Use
  Company Number: PHHY2010MX39529

PATIENT
  Age: 58 Year
  Sex: Male

DRUGS (4)
  1. GALVUS MET [Suspect]
     Indication: DIABETES MELLITUS
     Dosage: 2 TABLETS ( 50/500 MG ) PER DAY
     Dates: start: 20081101
  2. EXFORGE [Suspect]
     Indication: HYPERTENSION
     Dosage: 1 TABLET
  3. DOLAC [Concomitant]
  4. LEVOFLOXACIN [Concomitant]
     Dosage: UNK

REACTIONS (1)
  - GALLBLADDER OPERATION [None]
